FAERS Safety Report 9959159 (Version 2)
Quarter: 2014Q1

REPORT INFORMATION
  Report Type: Report from Study
  Country: US (occurrence: US)
  Receive Date: 20140305
  Receipt Date: 20140305
  Transmission Date: 20141002
  Serious: Yes (Hospitalization, Other)
  Sender: FDA-Public Use
  Company Number: US-ABBVIE-13P-163-1087727-00

PATIENT
  Age: 55 Year
  Sex: Male

DRUGS (3)
  1. HUMIRA [Suspect]
     Indication: COLITIS ULCERATIVE
     Dates: start: 20130104
  2. SIMVASTATIN [Concomitant]
     Indication: BLOOD CHOLESTEROL INCREASED
  3. UNKNOWN MEDICATIONS [Concomitant]
     Indication: DEPRESSION

REACTIONS (9)
  - Appendicitis [Not Recovered/Not Resolved]
  - Malaise [Recovering/Resolving]
  - Injection site haemorrhage [Recovering/Resolving]
  - Haematochezia [Recovering/Resolving]
  - Injection site haemorrhage [Not Recovered/Not Resolved]
  - Pain [Not Recovered/Not Resolved]
  - Diarrhoea [Not Recovered/Not Resolved]
  - Muscle spasms [Unknown]
  - Injection site pain [Not Recovered/Not Resolved]
